FAERS Safety Report 13299224 (Version 1)
Quarter: 2017Q1

REPORT INFORMATION
  Report Type: Spontaneous
  Country: PE (occurrence: PE)
  Receive Date: 20170306
  Receipt Date: 20170306
  Transmission Date: 20170428
  Serious: Yes (Other)
  Sender: FDA-Public Use
  Company Number: PE-PFIZER INC-2017062777

PATIENT
  Age: 86 Year
  Sex: Female

DRUGS (3)
  1. GLAUCOTENSIL TD [Concomitant]
     Dosage: 1 GTT(15 MINUTES BEFORE XALATAN APPLICATION), 1X/DAY
  2. XALATAN [Suspect]
     Active Substance: LATANOPROST
     Indication: GLAUCOMA
     Dosage: 2 GTT (1 DROP ON EACH EYE), DAILY
     Route: 047
  3. HUMYLUB OFTENO [Concomitant]
     Dosage: UNK

REACTIONS (1)
  - Cataract [Unknown]

NARRATIVE: CASE EVENT DATE: 2015
